FAERS Safety Report 21581425 (Version 1)
Quarter: 2022Q4

REPORT INFORMATION
  Report Type: Report from Study
  Country: TR (occurrence: TR)
  Receive Date: 20221111
  Receipt Date: 20221111
  Transmission Date: 20230112
  Serious: Yes (Other)
  Sender: FDA-Public Use
  Company Number: TR-SUN PHARMACEUTICAL INDUSTRIES LTD-2022R1-363223

PATIENT
  Sex: Female

DRUGS (2)
  1. SOTALOL [Suspect]
     Active Substance: SOTALOL
     Indication: Supraventricular tachyarrhythmia
     Dosage: 160 MG / DAY/ BID
     Route: 065
  2. FLECAINIDE [Suspect]
     Active Substance: FLECAINIDE
     Indication: Supraventricular tachyarrhythmia
     Dosage: 300 MG/DL
     Route: 065

REACTIONS (2)
  - Ventricular extrasystoles [Unknown]
  - Exposure during pregnancy [Unknown]
